FAERS Safety Report 5945946-8 (Version None)
Quarter: 2008Q4

REPORT INFORMATION
  Report Type: 
  Country: None (occurrence: None)
  Receive Date: 20081110
  Receipt Date: 20081103
  Transmission Date: 20090506
  Serious: Yes (Other)
  Sender: FDA-Public Use
  Company Number: US-BRISTOL-MYERS SQUIBB COMPANY-14394837

PATIENT
  Age: 5 Decade
  Sex: Male

DRUGS (2)
  1. BARACLUDE [Suspect]
     Indication: HEPATITIS B
  2. TENOFOVIR [Suspect]

REACTIONS (2)
  - FIBROSIS [None]
  - HEPATITIS B DNA INCREASED [None]
